FAERS Safety Report 6617973-9 (Version None)
Quarter: 2010Q1

REPORT INFORMATION
  Report Type: 
  Country: None (occurrence: None)
  Receive Date: 20100308
  Receipt Date: 20100301
  Transmission Date: 20100710
  Serious: Yes (Other)
  Sender: FDA-Public Use
  Company Number: US-SANOFI-AVENTIS-2010SA011761

PATIENT
  Sex: Male

DRUGS (14)
  1. MULTAQ [Suspect]
     Indication: ATRIAL FIBRILLATION
     Route: 048
     Dates: start: 20100226, end: 20100228
  2. ARANESP [Concomitant]
  3. CALCIUM [Concomitant]
  4. FLORINEF [Concomitant]
  5. INSULIN [Concomitant]
  6. POTASSIUM [Concomitant]
  7. MAGNESIUM [Concomitant]
  8. KEPPRA [Concomitant]
  9. POTASSIUM PHOSPHATES [Concomitant]
  10. LEVOXYL [Concomitant]
  11. MULTI-VITAMINS [Concomitant]
  12. PREDNISONE [Concomitant]
  13. PROGRAF [Concomitant]
  14. PROTONIX [Concomitant]

REACTIONS (3)
  - BLOOD CREATININE INCREASED [None]
  - CONDITION AGGRAVATED [None]
  - ELECTROCARDIOGRAM QRS COMPLEX PROLONGED [None]
